FAERS Safety Report 10514242 (Version 4)
Quarter: 2015Q2

REPORT INFORMATION
  Report Type: Spontaneous
  Country: US (occurrence: US)
  Receive Date: 20141013
  Receipt Date: 20150505
  Transmission Date: 20150821
  Serious: Yes (Other)
  Sender: FDA-Public Use
  Company Number: US-PFIZER INC-2014280748

PATIENT
  Age: 66 Year
  Sex: Female
  Weight: 120.18 kg

DRUGS (21)
  1. XELJANZ [Suspect]
     Active Substance: TOFACITINIB CITRATE
     Dosage: 5 MG, 2X/DAY
     Dates: start: 2014, end: 20150310
  2. TUMS [Concomitant]
     Active Substance: CALCIUM CARBONATE
     Dosage: FIVE TABLETS 1000MG EVERY DAY
  3. MULTIVITAMINS [Concomitant]
     Active Substance: VITAMINS
     Dosage: UNK, DAILY
  4. XELJANZ [Suspect]
     Active Substance: TOFACITINIB CITRATE
     Indication: RHEUMATOID ARTHRITIS
     Dosage: 5 MG, 2X/DAY
     Dates: start: 2014, end: 201406
  5. NEURONTIN [Concomitant]
     Active Substance: GABAPENTIN
     Dosage: 600 MG, 4X/DAY
  6. LATANOPROST. [Concomitant]
     Active Substance: LATANOPROST
     Indication: GLAUCOMA
     Dosage: 1 GTT, DAILY (ONE DROP IN BOTH EYES)
  7. PROTONIX [Concomitant]
     Active Substance: PANTOPRAZOLE SODIUM
     Dosage: 30 MG, 2X/DAY
  8. HUMALOG [Concomitant]
     Active Substance: INSULIN LISPRO
     Dosage: 17 IU, 3X/DAY (ONE DROP IN BOTH EYES)
  9. PROVERA [Concomitant]
     Active Substance: MEDROXYPROGESTERONE ACETATE
     Dosage: UNK , AS NEEDED (TWO PACKS)
  10. AMILORIDE [Concomitant]
     Active Substance: AMILORIDE
     Dosage: 5 MG, DAILY
  11. CITRACAL [Concomitant]
     Active Substance: CALCIUM CITRATE
     Dosage: 1 DF, 1X/DAY (ONE TABLET AT BEDTIME)
  12. PREDNISONE. [Concomitant]
     Active Substance: PREDNISONE
     Dosage: 8 MG, DAILY
  13. WELLBUTRIN [Concomitant]
     Active Substance: BUPROPION HYDROCHLORIDE
     Dosage: 150 MG, 1X/DAY
  14. XELJANZ [Suspect]
     Active Substance: TOFACITINIB CITRATE
     Dosage: 5 MG, 2X/DAY
     Dates: start: 2014, end: 201410
  15. OXYCODONE [Concomitant]
     Active Substance: OXYCODONE
     Dosage: 7.5 MG, AS NEEDED (EVERY SIX HOURS)
  16. MAG-OX [Concomitant]
     Active Substance: MAGNESIUM OXIDE
     Dosage: 400 MG, DAILY
  17. AVAPRO [Concomitant]
     Active Substance: IRBESARTAN
     Dosage: 300 MG, DAILY
  18. TYLENOL EX [Concomitant]
     Dosage: UNK, AS NEEDED
  19. LANTUS [Concomitant]
     Active Substance: INSULIN GLARGINE
     Dosage: 23 IU, 1X/DAY (BEDTIME)
  20. PROZAC [Concomitant]
     Active Substance: FLUOXETINE HYDROCHLORIDE
     Dosage: 40 MG, DAILY
  21. OXYCONTIN [Concomitant]
     Active Substance: OXYCODONE HYDROCHLORIDE
     Dosage: 30 MG, 2X/DAY

REACTIONS (6)
  - Cellulitis [Recovered/Resolved]
  - Disease progression [Not Recovered/Not Resolved]
  - Pyrexia [Recovered/Resolved]
  - Post laminectomy syndrome [Not Recovered/Not Resolved]
  - Body height decreased [Not Recovered/Not Resolved]
  - Limb injury [Recovered/Resolved]

NARRATIVE: CASE EVENT DATE: 201406
